FAERS Safety Report 6497874-X (Version None)
Quarter: 2009Q4

REPORT INFORMATION
  Report Type: 
  Country: None (occurrence: None)
  Receive Date: 20091215
  Receipt Date: 20091204
  Transmission Date: 20100525
  Serious: Yes (Hospitalization, Other)
  Sender: FDA-Public Use
  Company Number: US-AMGEN-QUU375542

PATIENT
  Sex: Female
  Weight: 55 kg

DRUGS (20)
  1. ENBREL [Suspect]
     Indication: RHEUMATOID ARTHRITIS
     Route: 058
     Dates: start: 20041101
  2. METHOTREXATE [Concomitant]
     Route: 048
  3. ATENOLOL [Concomitant]
     Route: 048
  4. ASPIRIN [Concomitant]
  5. PRAVACHOL [Concomitant]
  6. PRINIVIL [Concomitant]
     Route: 048
  7. NORVASC [Concomitant]
     Route: 048
  8. FOLIC ACID [Concomitant]
  9. VITAMIN B-12 [Concomitant]
  10. FERROUS GLUCONATE [Concomitant]
  11. HYDROCHLOROTHIAZIDE [Concomitant]
     Dates: end: 20080601
  12. MIRALAX [Concomitant]
     Dates: end: 20080601
  13. VITAMIN D [Concomitant]
     Route: 048
  14. COLACE [Concomitant]
  15. NEXIUM [Concomitant]
  16. HEPARIN [Concomitant]
     Route: 058
  17. LEVAQUIN [Concomitant]
     Route: 042
     Dates: end: 20081008
  18. ZOCOR [Concomitant]
  19. ULTRAM [Concomitant]
  20. TORADOL [Concomitant]
     Dates: end: 20081008

REACTIONS (19)
  - ABDOMINAL TENDERNESS [None]
  - BLOOD CHOLESTEROL INCREASED [None]
  - BRADYCARDIA [None]
  - BRONCHIOLOALVEOLAR CARCINOMA [None]
  - CHOLELITHIASIS [None]
  - CONSTIPATION [None]
  - DYSPEPSIA [None]
  - FALL [None]
  - GASTRIC ULCER [None]
  - GASTROOESOPHAGEAL REFLUX DISEASE [None]
  - HEAD INJURY [None]
  - HYPOVOLAEMIA [None]
  - INAPPROPRIATE ANTIDIURETIC HORMONE SECRETION [None]
  - NAUSEA [None]
  - OEDEMA PERIPHERAL [None]
  - POLLAKIURIA [None]
  - SKIN LACERATION [None]
  - TRANSFERRIN SATURATION DECREASED [None]
  - URINARY TRACT INFECTION [None]
